FAERS Safety Report 14332463 (Version 10)
Quarter: 2022Q3

REPORT INFORMATION
  Report Type: Report from Study
  Country: JP (occurrence: None)
  Receive Date: 20171228
  Receipt Date: 20220912
  Transmission Date: 20221027
  Serious: Yes (Hospitalization)
  Sender: FDA-Public Use
  Company Number: JP-ROCHE-2045780

PATIENT
  Age: 44 Year
  Sex: Female
  Weight: 50 kg

DRUGS (20)
  1. ATEZOLIZUMAB [Suspect]
     Active Substance: ATEZOLIZUMAB
     Indication: Triple negative breast cancer
     Dosage: DATE OF MOST RECENT DOSE PRIOR TO EVENT ONSET ON 05/DEC/2017 AT 14.02
     Route: 042
     Dates: start: 20170926
  2. PACLITAXEL [Suspect]
     Active Substance: PACLITAXEL
     Indication: Triple negative breast cancer
     Dosage: DATE OF MOST RECENT DOSE (181 MG) ON 05/DEC/2017 AT 14.40
     Route: 042
     Dates: start: 20170926
  3. HYDROCORTISONE [Concomitant]
     Active Substance: HYDROCORTISONE
     Indication: Rash
     Route: 061
     Dates: start: 20171115, end: 20171121
  4. SODIUM GUALENATE MONOHYDRATE [Concomitant]
     Active Substance: SODIUM GUALENATE MONOHYDRATE
     Indication: Stomatitis
     Dates: start: 20171003, end: 20180412
  5. DEXAMETHASONE [Concomitant]
     Active Substance: DEXAMETHASONE
     Indication: Stomatitis
     Dates: start: 20171003, end: 20180412
  6. LOXOPROFEN SODIUM DIHYDRATE [Concomitant]
     Active Substance: LOXOPROFEN SODIUM DIHYDRATE
     Indication: Arthralgia
     Dates: start: 20171003, end: 20171219
  7. LOXOPROFEN SODIUM DIHYDRATE [Concomitant]
     Active Substance: LOXOPROFEN SODIUM DIHYDRATE
     Indication: Headache
  8. REBAMIPIDE [Concomitant]
     Active Substance: REBAMIPIDE
     Indication: Gastritis
     Dates: start: 20171003, end: 20171219
  9. RINDERON VG [Concomitant]
     Active Substance: BETAMETHASONE VALERATE\GENTAMICIN SULFATE
     Indication: Rash
     Dosage: PRN (AS NEEDED)
     Route: 061
     Dates: start: 20171017, end: 20171121
  10. RINDERON VG [Concomitant]
     Active Substance: BETAMETHASONE VALERATE\GENTAMICIN SULFATE
     Route: 061
     Dates: start: 20171107, end: 20171121
  11. HEPARINOID [Concomitant]
     Indication: Dry skin
     Dates: start: 20171031
  12. MAGNESIUM OXIDE [Concomitant]
     Active Substance: MAGNESIUM OXIDE
     Indication: Constipation
     Dates: start: 20171114, end: 20171128
  13. SENNOSIDES A AND B [Concomitant]
     Active Substance: SENNOSIDES A AND B
     Indication: Constipation
     Dates: start: 20171114, end: 20180826
  14. PETROLATUM [Concomitant]
     Active Substance: PETROLATUM
     Indication: Dry skin
     Dates: start: 20171115, end: 20180412
  15. FLUOCINONIDE [Concomitant]
     Active Substance: FLUOCINONIDE
     Indication: Rash
     Dosage: DOSE: 0.05
     Route: 061
     Dates: start: 20171115
  16. VONOPRAZAN FUMARATE [Concomitant]
     Active Substance: VONOPRAZAN FUMARATE
     Indication: Nausea
     Dates: start: 20171121, end: 20180604
  17. CLOBETASOL PROPIONATE [Concomitant]
     Active Substance: CLOBETASOL PROPIONATE
     Indication: Rash
     Route: 061
     Dates: start: 20171219, end: 20180412
  18. DIPHENHYDRAMINE LAURYLSULFATE [Concomitant]
     Indication: Rash
     Dates: start: 20171219, end: 20180412
  19. FEXOFENADINE HYDROCHLORIDE [Concomitant]
     Active Substance: FEXOFENADINE HYDROCHLORIDE
     Indication: Rash
     Dates: start: 20171219
  20. SALICYLIC ACID [Concomitant]
     Active Substance: SALICYLIC ACID
     Indication: Dry skin
     Dates: start: 20171219, end: 20180412

REACTIONS (2)
  - Hepatic function abnormal [Recovered/Resolved]
  - Steroid diabetes [Recovered/Resolved]

NARRATIVE: CASE EVENT DATE: 20171212
